FAERS Safety Report 19391272 (Version 1)
Quarter: 2021Q2

REPORT INFORMATION
  Report Type: Spontaneous
  Country: US (occurrence: US)
  Receive Date: 20210609
  Receipt Date: 20210609
  Transmission Date: 20210717
  Serious: No
  Sender: FDA-Public Use
  Company Number: US-DRREDDYS-USA/USA/21/0136253

PATIENT
  Age: 73 Year
  Sex: Female
  Weight: 108 kg

DRUGS (1)
  1. COLCHICINE. [Suspect]
     Active Substance: COLCHICINE
     Indication: GOUT
     Dates: start: 20210528, end: 20210531

REACTIONS (4)
  - Product quality issue [Unknown]
  - Condition aggravated [Unknown]
  - Product administration error [Unknown]
  - Drug ineffective [Unknown]
